FAERS Safety Report 8934080 (Version 1)
Quarter: 2012Q4

REPORT INFORMATION
  Report Type: 
  Country: US (occurrence: US)
  Receive Date: 20121129
  Receipt Date: 20121129
  Transmission Date: 20130627
  Serious: No
  Sender: FDA-Public Use
  Company Number: US-GLAXOSMITHKLINE-A0949725A

PATIENT
  Age: 70 Year
  Sex: Female

DRUGS (7)
  1. WELLBUTRIN SR [Suspect]
     Indication: DEPRESSION
     Dosage: 150MG Per day
     Route: 048
  2. ADVAIR [Concomitant]
  3. COMBIVENT [Concomitant]
  4. PROZAC [Concomitant]
  5. SEROQUEL [Concomitant]
  6. BUSPAR [Concomitant]
  7. ALLEGRA [Concomitant]

REACTIONS (1)
  - Rash [Recovered/Resolved]
